FAERS Safety Report 9191063 (Version 1)
Quarter: 2013Q1

REPORT INFORMATION
  Report Type: Spontaneous
  Country: US (occurrence: None)
  Receive Date: 20120703
  Receipt Date: 20120703
  Transmission Date: 20140127
  Serious: No
  Sender: FDA-Public Use
  Company Number: PHEH2012US008138

PATIENT
  Age: 53 Year
  Sex: Female
  Weight: 74 kg

DRUGS (3)
  1. GILENYA [Suspect]
     Indication: RELAPSING-REMITTING MULTIPLE SCLEROSIS
     Route: 048
     Dates: start: 20120413, end: 20120413
  2. AMBIEN (ZOLPIDEM TARTRATE) [Concomitant]
  3. TRAZODONE (TRAZODONE) [Concomitant]

REACTIONS (8)
  - Arrhythmia [None]
  - Electrocardiogram QT interval abnormal [None]
  - Blood pressure decreased [None]
  - Blood calcium decreased [None]
  - Protein total decreased [None]
  - Asthenia [None]
  - Dizziness postural [None]
  - Bradycardia [None]
